FAERS Safety Report 9988509 (Version 1)
Quarter: 2014Q1

REPORT INFORMATION
  Report Type: Spontaneous
  Country: US (occurrence: US)
  Receive Date: 20140310
  Receipt Date: 20140310
  Transmission Date: 20141002
  Serious: No
  Sender: FDA-Public Use
  Company Number: US-BIOGENIDEC-2014BI017789

PATIENT
  Age: 59 Year
  Sex: Female

DRUGS (1)
  1. TECFIDERA [Suspect]
     Indication: PRODUCT USED FOR UNKNOWN INDICATION
     Route: 048
     Dates: start: 20131122, end: 20140212

REACTIONS (13)
  - Fatigue [Not Recovered/Not Resolved]
  - Hypertension [Unknown]
  - Feeling cold [Unknown]
  - Sensory disturbance [Unknown]
  - Paraesthesia [Unknown]
  - Blindness [Unknown]
  - Aneurysm [Unknown]
  - Blood pressure diastolic increased [Unknown]
  - Headache [Unknown]
  - Nausea [Unknown]
  - Retching [Unknown]
  - Abdominal pain upper [Unknown]
  - Rash pruritic [Unknown]
